FAERS Safety Report 16791722 (Version 1)
Quarter: 2019Q4

REPORT INFORMATION
  Report Type: Spontaneous
  Country: US (occurrence: US)
  Receive Date: 20190910
  Receipt Date: 20190910
  Transmission Date: 20200122
  Serious: Yes (Other)
  Sender: FDA-Public Use
  Company Number: None

PATIENT
  Age: 24 Year
  Sex: Male
  Weight: 83.91 kg

DRUGS (10)
  1. METAMUCIL 1 PACKET QHS [Concomitant]
  2. IBUPROFEN 400MG Q4H PRN [Concomitant]
  3. MIRALAX 17G QD PRN [Concomitant]
  4. SENNOSIDES 8.6MG QHS PRN [Concomitant]
  5. VITAMIN D3 400 UNITS QHS [Concomitant]
  6. CALCIUM CARBONATE (TUMS) 1000MG Q2H PRN [Concomitant]
  7. DIPHENHYDRAMINE 50MG Q4H PRN [Concomitant]
  8. CLOZAPINE. [Suspect]
     Active Substance: CLOZAPINE
     Indication: PSYCHOTIC DISORDER
     Route: 048
     Dates: start: 20190729
  9. DEPLIN 7.5MG-90.314MG QHS [Concomitant]
  10. DESLORATIDINE 5MG QHS [Concomitant]

REACTIONS (2)
  - Product substitution issue [None]
  - Eosinophil count increased [None]

NARRATIVE: CASE EVENT DATE: 20190905
